FAERS Safety Report 4775532-7 (Version None)
Quarter: 2005Q3

REPORT INFORMATION
  Report Type: 
  Country: None (occurrence: None)
  Receive Date: 20050922
  Receipt Date: 20050912
  Transmission Date: 20060218
  Serious: Yes (Death)
  Sender: FDA-Public Use
  Company Number: US-JNJFOC-20040303196

PATIENT
  Sex: Female

DRUGS (9)
  1. INFLIXIMAB [Suspect]
     Indication: RHEUMATOID ARTHRITIS
     Route: 042
     Dates: start: 20010125, end: 20021003
  2. LEVOTHYROXINE SODIUM [Concomitant]
  3. FOLIC ACID [Concomitant]
  4. DILTIAZEM CD [Concomitant]
  5. ZESTRIL [Concomitant]
  6. IMURAN [Concomitant]
  7. ASPIRIN [Concomitant]
  8. LASIX [Concomitant]
  9. VITAMIN B-12 [Concomitant]

REACTIONS (1)
  - PNEUMONIA [None]
